FAERS Safety Report 6957702-2 (Version None)
Quarter: 2010Q3

REPORT INFORMATION
  Report Type: 
  Country: None (occurrence: None)
  Receive Date: 20100831
  Receipt Date: 20100825
  Transmission Date: 20110219
  Serious: Yes (Death, Hospitalization)
  Sender: FDA-Public Use
  Company Number: US-CELGENEUS-163-21880-10082704

PATIENT
  Sex: Male

DRUGS (2)
  1. REVLIMID [Suspect]
     Route: 048
     Dates: start: 20090923, end: 20091013
  2. REVLIMID [Suspect]
     Route: 048
     Dates: start: 20091021, end: 20091028

REACTIONS (6)
  - DISSEMINATED INTRAVASCULAR COAGULATION [None]
  - PANCYTOPENIA [None]
  - PLEURAL EFFUSION [None]
  - PNEUMONIA [None]
  - PURPURA [None]
  - RESPIRATORY FAILURE [None]
